FAERS Safety Report 19450787 (Version 1)
Quarter: 2021Q2

REPORT INFORMATION
  Report Type: Spontaneous
  Country: US (occurrence: US)
  Receive Date: 20210621
  Receipt Date: 20210621
  Transmission Date: 20210717
  Serious: Yes (Hospitalization)
  Sender: FDA-Public Use
  Company Number: None

PATIENT
  Age: 26 Year
  Sex: Female
  Weight: 61.23 kg

DRUGS (2)
  1. COPPER IUD [Suspect]
     Active Substance: COPPER
     Dates: start: 20160804, end: 20210603
  2. VITAMIN D [Concomitant]
     Active Substance: VITAMIN D NOS

REACTIONS (3)
  - Pain [None]
  - Device breakage [None]
  - Device expulsion [None]

NARRATIVE: CASE EVENT DATE: 20210603
